FAERS Safety Report 7199531-3 (Version None)
Quarter: 2010Q4

REPORT INFORMATION
  Report Type: 
  Country: None (occurrence: None)
  Receive Date: 20101228
  Receipt Date: 20101215
  Transmission Date: 20110411
  Serious: Yes (Other)
  Sender: FDA-Public Use
  Company Number: PHHY2010CA85515

PATIENT
  Sex: Female

DRUGS (1)
  1. ALISKIREN [Suspect]
     Dosage: UNK
     Route: 048
     Dates: start: 20100915, end: 20100921

REACTIONS (1)
  - MYOCARDIAL INFARCTION [None]
